FAERS Safety Report 23271341 (Version 1)
Quarter: 2023Q4

REPORT INFORMATION
  Report Type: Spontaneous
  Country: US (occurrence: US)
  Receive Date: 20231207
  Receipt Date: 20231207
  Transmission Date: 20240109
  Serious: Yes (Other)
  Sender: FDA-Public Use
  Company Number: US-MYLANLABS-2023M1129121

PATIENT
  Age: 14 Year
  Sex: Female

DRUGS (1)
  1. CYCLOSPORINE [Suspect]
     Active Substance: CYCLOSPORINE
     Indication: Hereditary alpha tryptasaemia
     Dosage: UNK
     Route: 065

REACTIONS (4)
  - Small fibre neuropathy [Unknown]
  - Condition aggravated [Unknown]
  - Therapy partial responder [Unknown]
  - Off label use [Unknown]
